FAERS Safety Report 7734274-6 (Version None)
Quarter: 2011Q3

REPORT INFORMATION
  Report Type: 
  Country: None (occurrence: None)
  Receive Date: 20110901
  Receipt Date: 20110817
  Transmission Date: 20111222
  Serious: Yes (Other)
  Sender: FDA-Public Use
  Company Number: US-1187235

PATIENT
  Age: 64 Year
  Sex: Male
  Weight: 148.2 kg

DRUGS (14)
  1. BSS [Suspect]
     Indication: CATARACT OPERATION
     Dosage: (500 ML INTRAOCULAR)
     Route: 031
     Dates: start: 20110713, end: 20110713
  2. FLURBIPROFEN SODIUM [Concomitant]
  3. MOXIFLOXACIN HYDROCHLORIDE [Concomitant]
  4. PRAVASTATIN SODIUM [Concomitant]
  5. DICLOFENAC SODIUM [Concomitant]
  6. ACETAZOLAMIDE [Concomitant]
  7. FINASTERIDE [Concomitant]
  8. PHENYLEPHRINE HYDROCHLORIDE [Concomitant]
  9. HYDROCHLOROTHIAZIDE W/ LISINOPRIL DIHYDRATE [Concomitant]
  10. ALLOPURINOL [Concomitant]
  11. EPINEPHRINE [Concomitant]
  12. PREDNISOLONE ACETATE [Concomitant]
  13. CYCLOPENTOLATE HYDROCHLORIDE [Concomitant]
  14. NAPROXEN [Concomitant]

REACTIONS (1)
  - TOXIC ANTERIOR SEGMENT SYNDROME [None]
